FAERS Safety Report 17762503 (Version 2)
Quarter: 2020Q2

REPORT INFORMATION
  Report Type: Report from Study
  Country: IN (occurrence: IN)
  Receive Date: 20200508
  Receipt Date: 20200604
  Transmission Date: 20200714
  Serious: Yes (Other)
  Sender: FDA-Public Use
  Company Number: NVSC2020IN125493

PATIENT
  Age: 65 Year
  Sex: Male
  Weight: 65 kg

DRUGS (1)
  1. GALVUS MET [Suspect]
     Active Substance: METFORMIN HYDROCHLORIDE\VILDAGLIPTIN
     Indication: DIABETES MELLITUS
     Dosage: (CONC 50/500 OT), BID
     Route: 048

REACTIONS (8)
  - Gastrointestinal disorder [Unknown]
  - Blood creatinine increased [Unknown]
  - Hyperglycaemia [Unknown]
  - Hypertension [Unknown]
  - Feeling abnormal [Unknown]
  - Urine abnormality [Not Recovered/Not Resolved]
  - Blood glucose increased [Unknown]
  - Obesity [Unknown]

NARRATIVE: CASE EVENT DATE: 20200318
